FAERS Safety Report 24939746 (Version 1)
Quarter: 2025Q1

REPORT INFORMATION
  Report Type: Report from Study
  Country: US (occurrence: US)
  Receive Date: 20250207
  Receipt Date: 20250207
  Transmission Date: 20250408
  Serious: Yes (Other)
  Sender: ABBVIE
  Company Number: US-ABBVIE-5991234

PATIENT
  Age: 75 Year
  Sex: Female

DRUGS (4)
  1. SKYRIZI [Suspect]
     Active Substance: RISANKIZUMAB-RZAA
     Indication: Psoriasis
     Route: 058
  2. SKYRIZI [Suspect]
     Active Substance: RISANKIZUMAB-RZAA
     Route: 058
     Dates: start: 20240516
  3. SKYRIZI [Suspect]
     Active Substance: RISANKIZUMAB-RZAA
     Route: 058
     Dates: start: 202308
  4. ELIQUIS [Suspect]
     Active Substance: APIXABAN
     Indication: Product used for unknown indication
     Route: 065

REACTIONS (12)
  - Pharyngeal haemorrhage [Unknown]
  - Bronchitis [Recovered/Resolved]
  - Lung disorder [Unknown]
  - Nasopharyngitis [Not Recovered/Not Resolved]
  - Burning sensation [Unknown]
  - Lower respiratory tract congestion [Unknown]
  - Weight decreased [Recovered/Resolved]
  - Visual impairment [Unknown]
  - Chronic lymphocytic leukaemia [Recovering/Resolving]
  - Foreign body in throat [Unknown]
  - Pallor [Unknown]
  - Psoriasis [Unknown]

NARRATIVE: CASE EVENT DATE: 20240101
